FAERS Safety Report 8911668 (Version 1)
Quarter: 2012Q4

REPORT INFORMATION
  Report Type: 
  Country: US (occurrence: US)
  Receive Date: 20121116
  Receipt Date: 20121116
  Transmission Date: 20130627
  Serious: Yes (Hospitalization)
  Sender: FDA-Public Use
  Company Number: US-BAYER-2012-118073

PATIENT
  Age: 40 Year
  Sex: Female
  Weight: 72.56 kg

DRUGS (9)
  1. YAZ [Suspect]
  2. LEVAQUIN [Concomitant]
     Dosage: 500 mg, UNK
  3. PREDNISONE [Concomitant]
     Dosage: 20 mg, UNK
  4. DOXYCYCLINE [Concomitant]
     Dosage: 100 mg, UNK
  5. ADVAIR [Concomitant]
     Dosage: 21 ?g, UNK
  6. AZITHROMYCIN [Concomitant]
     Dosage: 250 mg, UNK
  7. VENTOLIN HFA [Concomitant]
     Dosage: 90 ?g, UNK
  8. ALBUTEROL [Concomitant]
  9. ADVAIR [Concomitant]

REACTIONS (1)
  - Pulmonary embolism [None]
